FAERS Safety Report 20151078 (Version 2)
Quarter: 2021Q4

REPORT INFORMATION
  Report Type: Report from Study
  Country: ES (occurrence: ES)
  Receive Date: 20211206
  Receipt Date: 20211224
  Transmission Date: 20220303
  Serious: Yes (Hospitalization)
  Sender: FDA-Public Use
  Company Number: ES-TAKEDA-2021TUS077249

PATIENT
  Age: 63 Year
  Sex: Female

DRUGS (8)
  1. TEDUGLUTIDE [Suspect]
     Active Substance: TEDUGLUTIDE
     Indication: Short-bowel syndrome
     Dosage: 2.40 MILLIGRAM, QD
     Route: 058
     Dates: start: 20190522, end: 20191119
  2. TEDUGLUTIDE [Suspect]
     Active Substance: TEDUGLUTIDE
     Indication: Short-bowel syndrome
     Dosage: 2.40 MILLIGRAM, QD
     Route: 058
     Dates: start: 20190522, end: 20191119
  3. TEDUGLUTIDE [Suspect]
     Active Substance: TEDUGLUTIDE
     Indication: Short-bowel syndrome
     Dosage: 2.40 MILLIGRAM, QD
     Route: 058
     Dates: start: 20190522, end: 20191119
  4. TEDUGLUTIDE [Suspect]
     Active Substance: TEDUGLUTIDE
     Indication: Short-bowel syndrome
     Dosage: 2.40 MILLIGRAM, QD
     Route: 058
     Dates: start: 20190522, end: 20191119
  5. ERTAPENEM [Concomitant]
     Active Substance: ERTAPENEM
     Indication: Infection
     Dosage: 1 GRAM, QD
     Route: 042
     Dates: start: 20210410, end: 20210412
  6. ANIDULAFUNGIN [Concomitant]
     Active Substance: ANIDULAFUNGIN
     Indication: Infection
     Dosage: 100 MILLIGRAM, QD
     Route: 042
     Dates: start: 20210501, end: 20210502
  7. MEROPENEM [Concomitant]
     Active Substance: MEROPENEM
     Indication: Infection
     Dosage: 1 GRAM, TID
     Route: 042
     Dates: start: 20210509, end: 20210510
  8. DAPTOMYCIN [Concomitant]
     Active Substance: DAPTOMYCIN
     Indication: Infection
     Dosage: 500 MILLIGRAM, QD
     Route: 042
     Dates: start: 20210430, end: 20210506

REACTIONS (1)
  - Hyponatraemia [Recovered/Resolved]

NARRATIVE: CASE EVENT DATE: 20201229
